FAERS Safety Report 5686973-8 (Version None)
Quarter: 2008Q1

REPORT INFORMATION
  Report Type: 
  Country: None (occurrence: None)
  Receive Date: 20080328
  Receipt Date: 20070531
  Transmission Date: 20080703
  Serious: No
  Sender: FDA-Public Use
  Company Number: US-BAYER-US-2007-020377

PATIENT
  Age: 29 Year
  Sex: Female
  Weight: 65 kg

DRUGS (1)
  1. MIRENA [Suspect]
     Route: 015
     Dates: start: 20061012, end: 20070529

REACTIONS (3)
  - MENORRHAGIA [None]
  - POLYMENORRHOEA [None]
  - PROCEDURAL PAIN [None]
